FAERS Safety Report 7275484-4 (Version None)
Quarter: 2011Q1

REPORT INFORMATION
  Report Type: 
  Country: None (occurrence: None)
  Receive Date: 20110126
  Receipt Date: 20110105
  Transmission Date: 20110831
  Serious: Yes (Hospitalization)
  Sender: FDA-Public Use
  Company Number: WAES 1101USA00171

PATIENT
  Age: 33 Year
  Sex: Female

DRUGS (11)
  1. CISPLATIN [Suspect]
     Indication: CHEMOTHERAPY
     Dosage: (50 MG/M[2]/DAILY) (37.5 MG/M[2]/DAILY)
     Route: 042
     Dates: start: 20101210
  2. CISPLATIN [Suspect]
     Indication: CHEMOTHERAPY
     Dosage: (50 MG/M[2]/DAILY) (37.5 MG/M[2]/DAILY)
     Route: 042
     Dates: start: 20101229
  3. GEMCITABINE [Suspect]
     Indication: CHEMOTHERAPY
     Dosage: 500 MG/M[2]/DAILY
     Route: 042
     Dates: start: 20101210
  4. DEXAMETHASONE ACETATE [Suspect]
     Indication: CHEMOTHERAPY
     Dosage: 40 MG/DAILY
     Route: 048
     Dates: start: 20101210
  5. FAMOTIDINE [Concomitant]
  6. INOTUZUMAB OZOGAMICIN [Suspect]
     Indication: CHEMOTHERAPY
     Dosage: 0.8 MG/M[2]/DAILY
     Route: 042
     Dates: start: 20101211
  7. ACYCLOVIR [Concomitant]
  8. DOMERIDONE [Concomitant]
  9. CIPROFLOXACIN [Concomitant]
  10. RITUXIMAB [Suspect]
     Indication: CHEMOTHERAPY
     Dosage: 375 MG/M[2]/DAILY
     Route: 042
     Dates: start: 20101210
  11. BLINDED THERAPY [Suspect]
     Dates: start: 20101210

REACTIONS (7)
  - RED CELL DISTRIBUTION WIDTH INCREASED [None]
  - FEBRILE NEUTROPENIA [None]
  - WHITE BLOOD CELL COUNT DECREASED [None]
  - RED BLOOD CELL COUNT DECREASED [None]
  - HAEMATOCRIT DECREASED [None]
  - PLATELET COUNT DECREASED [None]
  - MEAN PLATELET VOLUME DECREASED [None]
